FAERS Safety Report 5610704-0 (Version None)
Quarter: 2008Q1

REPORT INFORMATION
  Report Type: 
  Country: None (occurrence: None)
  Receive Date: 20080130
  Receipt Date: 20080130
  Transmission Date: 20080703
  Serious: Yes (Other)
  Sender: FDA-Public Use
  Company Number: None

PATIENT
  Age: 39 Year
  Sex: Female
  Weight: 54.4316 kg

DRUGS (2)
  1. AVELOX [Suspect]
     Indication: SINUSITIS
     Dosage: 400 MG  1X/ DAY  PO
     Route: 048
     Dates: start: 20080118, end: 20080118
  2. LEVAQUIN [Suspect]
     Indication: SINUSITIS
     Dosage: 750 MG  1X/DAY  PO
     Route: 048
     Dates: start: 20080119, end: 20080120

REACTIONS (5)
  - ARTHRALGIA [None]
  - DIZZINESS [None]
  - EXERCISE TOLERANCE DECREASED [None]
  - MUSCULOSKELETAL PAIN [None]
  - PAIN IN EXTREMITY [None]
